FAERS Safety Report 20626783 (Version 2)
Quarter: 2022Q3

REPORT INFORMATION
  Report Type: Report from Study
  Country: CA (occurrence: CA)
  Receive Date: 20220323
  Receipt Date: 20220715
  Transmission Date: 20221027
  Serious: Yes (Other)
  Sender: FDA-Public Use
  Company Number: CA-TAKEDA-2022TUS018956

PATIENT
  Age: 69 Year
  Sex: Female

DRUGS (4)
  1. VEDOLIZUMAB [Suspect]
     Active Substance: VEDOLIZUMAB
     Indication: Colitis ulcerative
     Dosage: 300 MILLIGRAM
     Route: 042
     Dates: start: 20180530
  2. MESALAMINE [Concomitant]
     Active Substance: MESALAMINE
     Dosage: UNK, QD
  3. MESALAMINE [Concomitant]
     Active Substance: MESALAMINE
     Dosage: UNK
     Route: 048
  4. MESALAMINE [Concomitant]
     Active Substance: MESALAMINE
     Dosage: UNK
     Route: 054

REACTIONS (3)
  - Cataract [Unknown]
  - Vitrectomy [Unknown]
  - Blood pressure increased [Unknown]

NARRATIVE: CASE EVENT DATE: 20220307
